FAERS Safety Report 12263442 (Version 1)
Quarter: 2016Q2

REPORT INFORMATION
  Report Type: Spontaneous
  Country: KR (occurrence: KR)
  Receive Date: 20160413
  Receipt Date: 20160413
  Transmission Date: 20160815
  Serious: Yes (Other)
  Sender: FDA-Public Use
  Company Number: KR-009507513-1604KOR008128

PATIENT
  Age: 38 Year
  Sex: Female

DRUGS (1)
  1. DESOGESTREL 150MCG (+) ETHINYL ESTRADIOL 20MCG [Suspect]
     Active Substance: DESOGESTREL\ETHINYL ESTRADIOL
     Indication: CONTRACEPTION
     Dosage: UNK
     Route: 048
     Dates: start: 20160329

REACTIONS (4)
  - Contraindicated drug administered [Unknown]
  - Genital haemorrhage [Not Recovered/Not Resolved]
  - Weight fluctuation [Unknown]
  - Swelling face [Unknown]

NARRATIVE: CASE EVENT DATE: 201603
